FAERS Safety Report 9053323 (Version 3)
Quarter: 2013Q3

REPORT INFORMATION
  Report Type: Report from Study
  Country: JP (occurrence: JP)
  Receive Date: 20130207
  Receipt Date: 20130906
  Transmission Date: 20140515
  Serious: Yes (Other)
  Sender: FDA-Public Use
  Company Number: JP-VERTEX PHARMACEUTICALS INC.-2013-001557

PATIENT
  Age: 63 Year
  Sex: Male

DRUGS (13)
  1. VX-950 (TELAPREVIR) [Suspect]
     Indication: HEPATITIS C
     Dosage: 2250 MG, QD
     Route: 048
     Dates: start: 20120403, end: 20120625
  2. RIBAVIRIN [Suspect]
     Indication: HEPATITIS C
     Dosage: 1000 MG, QD
     Route: 048
     Dates: start: 20120403, end: 20120423
  3. RIBAVIRIN [Suspect]
     Dosage: 800 MG, QD
     Route: 048
     Dates: start: 20120424, end: 20120529
  4. RIBAVIRIN [Suspect]
     Dosage: 600 MG, QD
     Route: 048
     Dates: start: 20120530, end: 20120605
  5. RIBAVIRIN [Suspect]
     Dosage: 400 MG, QD
     Route: 048
     Dates: start: 20120606, end: 20120724
  6. RIBAVIRIN [Suspect]
     Dosage: 600 MG, QD
     Route: 048
     Dates: start: 20120725, end: 20120821
  7. RIBAVIRIN [Suspect]
     Dosage: 800 MG, QD
     Route: 048
     Dates: start: 20120822, end: 20120917
  8. PEGINTERFERON ALFA-2B [Suspect]
     Indication: HEPATITIS C
     Dosage: 1.5 ?G/KG, QW
     Route: 058
     Dates: start: 20120403, end: 20120911
  9. URSO [Concomitant]
     Dosage: 600 MG, QD
     Route: 048
     Dates: end: 20120803
  10. PRORENAL [Concomitant]
     Dosage: 15 MG, QD
     Route: 048
     Dates: end: 20120626
  11. LENDORMIN [Concomitant]
     Dosage: 0.25 MG, QD
     Route: 048
     Dates: end: 20120626
  12. OLMETEC [Concomitant]
     Dosage: 10 MG, QD
     Route: 048
     Dates: start: 20120403, end: 20120426
  13. LOCOID [Concomitant]
     Dosage: UNK, PRN
     Route: 051
     Dates: start: 20120412, end: 20120607

REACTIONS (1)
  - Alpha 1 foetoprotein increased [Not Recovered/Not Resolved]
